FAERS Safety Report 4591367-2 (Version None)
Quarter: 2005Q1

REPORT INFORMATION
  Report Type: 
  Country: None (occurrence: None)
  Receive Date: 20050223
  Receipt Date: 20050223
  Transmission Date: 20050727
  Serious: Yes (Life-Threatening)
  Sender: FDA-Public Use
  Company Number: None

PATIENT
  Age: 53 Year
  Sex: Female
  Weight: 70.3075 kg

DRUGS (7)
  1. MANU-TARU     5 AND 10 MG TABS     (WARFARIN) [Suspect]
     Indication: DEEP VEIN THROMBOSIS
     Dosage: 10MG   DAILY   OTHER
     Route: 050
     Dates: start: 20050101, end: 20050207
  2. ALTACE [Concomitant]
  3. LIPITOR [Concomitant]
  4. PLAVIX [Concomitant]
  5. TOPROL-XL [Concomitant]
  6. EFFEXOR XR [Concomitant]
  7. FESO4 [Concomitant]

REACTIONS (2)
  - DRUG INEFFECTIVE [None]
  - PHARMACEUTICAL PRODUCT COMPLAINT [None]
